FAERS Safety Report 24657349 (Version 2)
Quarter: 2025Q1

REPORT INFORMATION
  Report Type: Spontaneous
  Country: AT (occurrence: AT)
  Receive Date: 20241125
  Receipt Date: 20250208
  Transmission Date: 20250408
  Serious: No
  Sender: ROCHE
  Company Number: AT-ROCHE-10000135003

PATIENT
  Age: 56 Year
  Sex: Male

DRUGS (1)
  1. ALECTINIB [Suspect]
     Active Substance: ALECTINIB
     Indication: Lung adenocarcinoma
     Route: 065
     Dates: start: 201710

REACTIONS (1)
  - Rosai-Dorfman syndrome [Unknown]

NARRATIVE: CASE EVENT DATE: 20230101
